FAERS Safety Report 13738031 (Version 2)
Quarter: 2017Q3

REPORT INFORMATION
  Report Type: Spontaneous
  Country: DE (occurrence: DE)
  Receive Date: 20170710
  Receipt Date: 20170913
  Transmission Date: 20171127
  Serious: Yes (Hospitalization)
  Sender: FDA-Public Use
  Company Number: DE-SA-2017SA119631

PATIENT
  Age: 23 Year
  Sex: Male
  Weight: 85 kg

DRUGS (2)
  1. LEMTRADA [Suspect]
     Active Substance: ALEMTUZUMAB
     Indication: RELAPSING-REMITTING MULTIPLE SCLEROSIS
     Route: 041
     Dates: start: 20170515, end: 20170519
  2. BRINZOLAMIDE [Suspect]
     Active Substance: BRINZOLAMIDE
     Indication: INTRAOCULAR PRESSURE TEST
     Dosage: ROUTE: EYE DROP
     Route: 065
     Dates: start: 20170609, end: 20170616

REACTIONS (18)
  - Vasculitis [Recovering/Resolving]
  - Febrile neutropenia [Recovering/Resolving]
  - Oropharyngeal pain [Recovering/Resolving]
  - Anaemia [Recovering/Resolving]
  - Still^s disease [Recovering/Resolving]
  - Leukopenia [Recovering/Resolving]
  - General physical health deterioration [Recovering/Resolving]
  - Lymphadenopathy [Recovering/Resolving]
  - Fatigue [Recovering/Resolving]
  - Splenomegaly [Recovering/Resolving]
  - Rash erythematous [Recovering/Resolving]
  - C-reactive protein increased [Recovering/Resolving]
  - Swelling [Recovering/Resolving]
  - Blood immunoglobulin E increased [Recovering/Resolving]
  - Sinus polyp [Recovering/Resolving]
  - Nervous system disorder [Recovering/Resolving]
  - Scarlet fever [Recovering/Resolving]
  - Rash macular [Recovering/Resolving]

NARRATIVE: CASE EVENT DATE: 201706
